FAERS Safety Report 5945326-5 (Version None)
Quarter: 2008Q4

REPORT INFORMATION
  Report Type: 
  Country: None (occurrence: None)
  Receive Date: 20081107
  Receipt Date: 20081030
  Transmission Date: 20090506
  Serious: Yes (Hospitalization)
  Sender: FDA-Public Use
  Company Number: DE-BRISTOL-MYERS SQUIBB COMPANY-14398556

PATIENT
  Age: 71 Year
  Sex: Female

DRUGS (10)
  1. CETUXIMAB [Suspect]
     Indication: NON-SMALL CELL LUNG CANCER
     Route: 042
     Dates: start: 20071221, end: 20080104
  2. CARBOPLATIN [Suspect]
     Indication: NON-SMALL CELL LUNG CANCER
     Route: 042
     Dates: start: 20071221, end: 20080104
  3. DOCETAXEL [Suspect]
     Indication: NON-SMALL CELL LUNG CANCER
     Route: 042
     Dates: start: 20071221, end: 20080104
  4. NEXIUM [Suspect]
     Indication: GASTRITIS
     Route: 048
  5. FURORESE [Concomitant]
     Indication: RENAL FAILURE
     Route: 048
     Dates: start: 20070101
  6. ENALAPRIL MALEATE [Concomitant]
     Indication: HYPERTENSION
     Route: 048
     Dates: start: 20070101
  7. TRANSTEC [Concomitant]
     Indication: PAIN
     Route: 062
     Dates: start: 20071101
  8. SEREVENT [Concomitant]
     Dosage: 2 PUFFS DAILY
  9. ATROVENT [Concomitant]
     Indication: CHRONIC OBSTRUCTIVE PULMONARY DISEASE
     Dosage: AEROSOL 4 PUFFS
     Dates: start: 20070101
  10. MOVICOL [Concomitant]
     Indication: CONSTIPATION
     Dates: start: 20080104

REACTIONS (2)
  - GASTRITIS [None]
  - STOMATITIS [None]
